FAERS Safety Report 11231080 (Version 2)
Quarter: 2015Q3

REPORT INFORMATION
  Report Type: Spontaneous
  Country: US (occurrence: US)
  Receive Date: 20150701
  Receipt Date: 20150813
  Transmission Date: 20151125
  Serious: Yes (Death, Other)
  Sender: FDA-Public Use
  Company Number: US-PFIZER INC-2015218431

PATIENT
  Age: 91 Year
  Sex: Male
  Weight: 63.49 kg

DRUGS (1)
  1. LYRICA [Suspect]
     Active Substance: PREGABALIN
     Indication: EPILEPSY
     Dosage: 50 MG, 3X/DAY

REACTIONS (2)
  - Death [Fatal]
  - Neoplasm malignant [Unknown]
